FAERS Safety Report 7719732-2 (Version None)
Quarter: 2011Q3

REPORT INFORMATION
  Report Type: 
  Country: None (occurrence: None)
  Receive Date: 20110831
  Receipt Date: 20110822
  Transmission Date: 20111222
  Serious: Yes (Hospitalization)
  Sender: FDA-Public Use
  Company Number: JP-AMGEN-JPNSP2011026533

PATIENT
  Age: 41 Year
  Sex: Female
  Weight: 42 kg

DRUGS (5)
  1. ENBREL [Suspect]
     Indication: RHEUMATOID ARTHRITIS
     Dosage: 25 MG, WEEKLY
     Route: 058
     Dates: start: 20100201, end: 20110526
  2. RHEUMATREX [Suspect]
     Indication: RHEUMATOID ARTHRITIS
     Dosage: 6 MG, WEEKLY
     Route: 048
     Dates: start: 20051209
  3. CINAL [Concomitant]
     Indication: POST INFLAMMATORY PIGMENTATION CHANGE
     Dosage: 1 DF, 2X/DAY
     Route: 048
  4. FAMOTIDINE [Concomitant]
     Indication: PROPHYLAXIS AGAINST GASTROINTESTINAL ULCER
     Dosage: 10 MG, 2X/DAY
     Route: 048
  5. MOVER [Concomitant]
     Indication: RHEUMATOID ARTHRITIS
     Dosage: 100 MG, 3X/DAY
     Route: 048

REACTIONS (3)
  - HAEMOPHILUS TEST POSITIVE [None]
  - INTERSTITIAL LUNG DISEASE [None]
  - DRUG ERUPTION [None]
